FAERS Safety Report 22110531 (Version 1)
Quarter: 2023Q1

REPORT INFORMATION
  Report Type: Other
  Country: US (occurrence: None)
  Receive Date: 20230317
  Receipt Date: 20230317
  Transmission Date: 20230418
  Serious: Yes (Hospitalization, Other)
  Sender: FDA-Public Use
  Company Number: US-ROCHE-3303967

PATIENT
  Age: 59 Year
  Sex: Female
  Weight: 64.922 kg

DRUGS (5)
  1. OCREVUS [Suspect]
     Active Substance: OCRELIZUMAB
     Indication: Primary progressive multiple sclerosis
     Dosage: YES
     Route: 042
     Dates: start: 2018
  2. BOTOX [Concomitant]
     Active Substance: ONABOTULINUMTOXINA
  3. GABAPENTIN [Concomitant]
     Active Substance: GABAPENTIN
  4. TIZANIDINE [Concomitant]
     Active Substance: TIZANIDINE
  5. CITALOPRAM [Concomitant]
     Active Substance: CITALOPRAM HYDROBROMIDE

REACTIONS (5)
  - Urinary tract infection [Recovered/Resolved]
  - Dysstasia [Recovered/Resolved]
  - Weight decreased [Recovered/Resolved]
  - Body height decreased [Recovered/Resolved]
  - Urinary incontinence [Recovered/Resolved]

NARRATIVE: CASE EVENT DATE: 20220901
